FAERS Safety Report 15058672 (Version 2)
Quarter: 2018Q3

REPORT INFORMATION
  Report Type: Spontaneous
  Country: JP (occurrence: JP)
  Receive Date: 20180625
  Receipt Date: 20180710
  Transmission Date: 20181010
  Serious: Yes (Death)
  Sender: FDA-Public Use
  Company Number: PHJP2018JP012958

PATIENT
  Age: 84 Year
  Sex: Male

DRUGS (2)
  1. NEORAL [Suspect]
     Active Substance: CYCLOSPORINE
     Indication: INTERSTITIAL LUNG DISEASE
     Dosage: 150 MG, QD
     Route: 048
  2. PREDNISOLONE. [Concomitant]
     Active Substance: PREDNISOLONE
     Indication: INTERSTITIAL LUNG DISEASE
     Dosage: 5 MG, UNK
     Route: 065

REACTIONS (13)
  - Disseminated cryptococcosis [Fatal]
  - Pyrexia [Fatal]
  - Cryptococcus test positive [Fatal]
  - Skin erosion [Fatal]
  - Inflammation [Fatal]
  - Product use in unapproved indication [Unknown]
  - Decreased appetite [Fatal]
  - Paranasal sinus hypersecretion [Fatal]
  - Haemoptysis [Fatal]
  - Feeling hot [Fatal]
  - Pneumonia bacterial [Fatal]
  - Swelling [Fatal]
  - Lung infiltration [Fatal]
